FAERS Safety Report 7038325-6 (Version None)
Quarter: 2010Q4

REPORT INFORMATION
  Report Type: 
  Country: None (occurrence: None)
  Receive Date: 20101011
  Receipt Date: 20090922
  Transmission Date: 20110411
  Serious: No
  Sender: FDA-Public Use
  Company Number: US-PFIZER INC-2009274353

PATIENT
  Age: 68 Year
  Sex: Female

DRUGS (10)
  1. GABAPENTIN [Suspect]
     Indication: PAIN IN EXTREMITY
     Dosage: 300 MG, 3X/DAY
     Dates: start: 20090805, end: 20090101
  2. PSYLLIUM [Suspect]
  3. GABAPENTIN [Suspect]
     Dosage: UNK
     Dates: start: 20090101
  4. SYNTHROID [Concomitant]
     Dosage: UNK
  5. GLIPIZIDE [Concomitant]
     Dosage: UNK
  6. METFORMIN [Concomitant]
     Dosage: 500 MG, UNK
  7. METOPROLOL [Concomitant]
     Indication: HYPERTENSION
     Dosage: UNK
  8. DIOVAN HCT [Concomitant]
     Dosage: UNK
  9. LIPITOR [Concomitant]
     Dosage: UNK
  10. PREDNISONE [Concomitant]
     Indication: PAIN
     Dosage: 10 MG, DAILY

REACTIONS (3)
  - CONSTIPATION [None]
  - DRUG INEFFECTIVE [None]
  - SOMNOLENCE [None]
